FAERS Safety Report 12090702 (Version 1)
Quarter: 2016Q1

REPORT INFORMATION
  Report Type: Spontaneous
  Country: US (occurrence: US)
  Receive Date: 20160218
  Receipt Date: 20160218
  Transmission Date: 20160526
  Serious: No
  Sender: FDA-Public Use
  Company Number: US-PERRIGO-15US006233

PATIENT
  Age: 35 Year
  Sex: Female
  Weight: 48.98 kg

DRUGS (4)
  1. CETIRIZINE HYDROCHLORIDE. [Suspect]
     Active Substance: CETIRIZINE HYDROCHLORIDE
     Indication: HYPERSENSITIVITY
  2. MUCINEX [Concomitant]
     Active Substance: GUAIFENESIN
     Indication: DYSPNOEA
     Dosage: UNK
     Route: 048
     Dates: start: 20150615
  3. CEFDINIR. [Concomitant]
     Active Substance: CEFDINIR
     Indication: DYSPNOEA
     Dosage: UNK
     Route: 048
     Dates: start: 20150615
  4. CETIRIZINE HYDROCHLORIDE. [Suspect]
     Active Substance: CETIRIZINE HYDROCHLORIDE
     Indication: DYSPNOEA
     Dosage: 10 MG, TWICE IN 13 HOURS
     Route: 048
     Dates: start: 20150615, end: 20150616

REACTIONS (1)
  - Off label use [Recovered/Resolved]

NARRATIVE: CASE EVENT DATE: 20150615
